FAERS Safety Report 20730866 (Version 1)
Quarter: 2022Q2

REPORT INFORMATION
  Report Type: Spontaneous
  Country: HR (occurrence: HR)
  Receive Date: 20220420
  Receipt Date: 20220420
  Transmission Date: 20220721
  Serious: Yes (Hospitalization, Other)
  Sender: FDA-Public Use
  Company Number: HR-ALVOGEN-2022-ALVOGEN-119537

PATIENT
  Age: 37 Year
  Sex: Male

DRUGS (1)
  1. BUPROPION [Suspect]
     Active Substance: BUPROPION
     Indication: Product used for unknown indication
     Route: 042

REACTIONS (3)
  - Drug abuse [Recovering/Resolving]
  - Seizure [Recovering/Resolving]
  - Delusion of parasitosis [Recovering/Resolving]
